FAERS Safety Report 19673439 (Version 1)
Quarter: 2021Q3

REPORT INFORMATION
  Report Type: Spontaneous
  Country: US (occurrence: US)
  Receive Date: 20210806
  Receipt Date: 20210806
  Transmission Date: 20211014
  Serious: Yes (Hospitalization)
  Sender: FDA-Public Use
  Company Number: None

PATIENT
  Age: 71 Year
  Sex: Male

DRUGS (2)
  1. OMEPRAZOLE. [Suspect]
     Active Substance: OMEPRAZOLE
     Route: 048
  2. HYDROCHLOROTHIAZIDE. [Suspect]
     Active Substance: HYDROCHLOROTHIAZIDE
     Route: 048

REACTIONS (7)
  - Atrial fibrillation [None]
  - Mental status changes [None]
  - Blood potassium decreased [None]
  - Blood calcium decreased [None]
  - Electrolyte imbalance [None]
  - Gastrointestinal haemorrhage [None]
  - Blood magnesium decreased [None]

NARRATIVE: CASE EVENT DATE: 20210602
